FAERS Safety Report 4658695-3 (Version None)
Quarter: 2005Q2

REPORT INFORMATION
  Report Type: 
  Country: None (occurrence: None)
  Receive Date: 20050510
  Receipt Date: 20050510
  Transmission Date: 20051028
  Serious: Yes (Hospitalization)
  Sender: FDA-Public Use
  Company Number: None

PATIENT
  Age: 23 Year
  Sex: Female
  Weight: 55 kg

DRUGS (14)
  1. DOXORUBICIN HCL [Suspect]
     Indication: HODGKIN'S DISEASE
     Dosage: 25 MG/M2, IV WEEKS 1,3,5,7,9,11
     Route: 042
     Dates: start: 20050126, end: 20050406
  2. VINBLASTINE [Suspect]
     Dosage: 6 MG/M2, IV, WEEKS 1,3,5,7,9,11
     Route: 042
  3. VINCRISTINE [Suspect]
     Dosage: 1.4 MG/M2, IV, WEEKS 2,4,6,8,10,12
     Route: 042
  4. BLEOMYCIN [Suspect]
     Dosage: 5 U/M2, IV, WEEKS 2,4,6,8,10,12
     Route: 042
  5. MUSTARD [Suspect]
     Dosage: 6 MG/M2, IV, WEEKS, 1, 5, 9
     Route: 042
  6. ETOPOSIDE [Suspect]
     Dosage: 60 MG/M2, IV X 2, WEEKS, 3, 7, 11
     Route: 042
  7. PREDNISONE [Suspect]
     Dosage: 40 MG/M2, PO QOD, WEEKS 1-9 TAPER
     Route: 048
  8. BACTRIM DS [Concomitant]
  9. ZANTAC [Concomitant]
  10. COMPAZINE [Concomitant]
  11. AMBIEN [Concomitant]
  12. ATIVAN [Concomitant]
  13. VICODIN [Concomitant]
  14. SENOKOT [Concomitant]

REACTIONS (11)
  - ABDOMINAL PAIN LOWER [None]
  - BLOOD GLUCOSE INCREASED [None]
  - BLOOD POTASSIUM DECREASED [None]
  - CLOSTRIDIUM COLITIS [None]
  - DYSTROPHIC CALCIFICATION [None]
  - FALLOPIAN TUBE DISORDER [None]
  - HAEMATOCRIT DECREASED [None]
  - HAEMOGLOBIN DECREASED [None]
  - INFARCTION [None]
  - NEUTROPENIA [None]
  - WHITE BLOOD CELL COUNT DECREASED [None]
